FAERS Safety Report 15080553 (Version 1)
Quarter: 2018Q2

REPORT INFORMATION
  Report Type: Spontaneous
  Country: US (occurrence: US)
  Receive Date: 20180628
  Receipt Date: 20180628
  Transmission Date: 20180711
  Serious: Yes (Hospitalization)
  Sender: FDA-Public Use
  Company Number: US-ROCHE-2146268

PATIENT
  Age: 84 Year
  Sex: Female

DRUGS (3)
  1. RANITIDINE HCL [Concomitant]
     Active Substance: RANITIDINE HYDROCHLORIDE
     Route: 065
  2. LIPITOR [Concomitant]
     Active Substance: ATORVASTATIN CALCIUM
     Route: 065
     Dates: start: 20160802
  3. ESBRIET [Suspect]
     Active Substance: PIRFENIDONE
     Indication: DYSPNOEA
     Dosage: 3 CAPSULES BID; AT SAME TIME; PRESENT
     Route: 048
     Dates: start: 20160802

REACTIONS (2)
  - Syncope [Not Recovered/Not Resolved]
  - Fatigue [Not Recovered/Not Resolved]

NARRATIVE: CASE EVENT DATE: 20180624
